FAERS Safety Report 5225346-9 (Version None)
Quarter: 2007Q1

REPORT INFORMATION
  Report Type: 
  Country: None (occurrence: None)
  Receive Date: 20070131
  Receipt Date: 20070123
  Transmission Date: 20070707
  Serious: Yes (Other)
  Sender: FDA-Public Use
  Company Number: TR-PFIZER INC-2007006281

PATIENT
  Age: 8 Year
  Sex: Male

DRUGS (2)
  1. SOMATROPIN [Suspect]
     Indication: BODY HEIGHT BELOW NORMAL
     Dosage: TEXT:0.33MG/KG/WEEK
  2. SOMATROPIN [Suspect]
     Dosage: TEXT:0.2MG/KG/WEEK

REACTIONS (1)
  - PSORIASIS [None]
